FAERS Safety Report 10878522 (Version 1)
Quarter: 2015Q1

REPORT INFORMATION
  Report Type: Spontaneous
  Country: US (occurrence: US)
  Receive Date: 20150302
  Receipt Date: 20150302
  Transmission Date: 20150721
  Serious: No
  Sender: FDA-Public Use
  Company Number: US-ABBVIE-14P-163-1212577-00

PATIENT
  Age: 50 Year
  Sex: Male
  Weight: 88.53 kg

DRUGS (1)
  1. ANDROGEL [Suspect]
     Active Substance: TESTOSTERONE
     Indication: PRODUCT USED FOR UNKNOWN INDICATION
     Dosage: 2 PUMPS DAILY
     Route: 061
     Dates: start: 201204, end: 201312

REACTIONS (6)
  - Drug prescribing error [Unknown]
  - Drug administered at inappropriate site [Unknown]
  - Burning sensation [Recovered/Resolved]
  - Application site rash [Recovered/Resolved]
  - Hypertension [Not Recovered/Not Resolved]
  - Rash papular [Recovered/Resolved]

NARRATIVE: CASE EVENT DATE: 201204
